FAERS Safety Report 16404551 (Version 1)
Quarter: 2019Q2

REPORT INFORMATION
  Report Type: Spontaneous
  Country: US (occurrence: US)
  Receive Date: 20190501
  Receipt Date: 20190501
  Transmission Date: 20190711
  Serious: Yes (Death, Hospitalization)
  Sender: FDA-Public Use
  Company Number: None

PATIENT
  Age: 20 Year
  Sex: Male
  Weight: 52 kg

DRUGS (3)
  1. VINCRISTINE SULFATE. [Suspect]
     Active Substance: VINCRISTINE SULFATE
     Dosage: ?          OTHER DOSE:0 UNIT;?
     Dates: end: 20160802
  2. CYCLOPHOSPHAMIDE. [Suspect]
     Active Substance: CYCLOPHOSPHAMIDE
     Dosage: ?          OTHER DOSE:0 UNIT;?
     Dates: end: 20160804
  3. CISPLATIN. [Suspect]
     Active Substance: CISPLATIN
     Dosage: ?          OTHER DOSE:0 UNIT;?
     Dates: end: 20160802

REACTIONS (4)
  - Pain [None]
  - Encephalitis [None]
  - Mucormycosis [None]
  - Delirium [None]

NARRATIVE: CASE EVENT DATE: 20190420
